FAERS Safety Report 8539328-2 (Version None)
Quarter: 2012Q3

REPORT INFORMATION
  Report Type: 
  Country: None (occurrence: None)
  Receive Date: 20120726
  Receipt Date: 20110720
  Transmission Date: 20120928
  Serious: No
  Sender: FDA-Public Use
  Company Number: US-ASTRAZENECA-2011SE43195

PATIENT
  Age: 53 Year
  Sex: Male
  Weight: 89.8 kg

DRUGS (6)
  1. MELATONIN [Concomitant]
  2. LAMICTAL [Concomitant]
  3. GENERIC COGENTIN [Concomitant]
  4. SEROQUEL [Suspect]
     Indication: BIPOLAR I DISORDER
     Route: 048
  5. SEROQUEL [Suspect]
     Route: 048
  6. SEROQUEL [Suspect]
     Route: 048
     Dates: start: 20110601

REACTIONS (6)
  - DRY MOUTH [None]
  - JOINT STIFFNESS [None]
  - INSOMNIA [None]
  - MUSCLE TIGHTNESS [None]
  - AMNESIA [None]
  - TREMOR [None]
